FAERS Safety Report 5033740-4 (Version None)
Quarter: 2006Q2

REPORT INFORMATION
  Report Type: 
  Country: None (occurrence: None)
  Receive Date: 20060623
  Receipt Date: 20060531
  Transmission Date: 20061013
  Serious: Yes (Hospitalization, Other)
  Sender: FDA-Public Use
  Company Number: 2006AP02513

PATIENT
  Age: 65 Year
  Sex: Male

DRUGS (3)
  1. ANAPEINE [Suspect]
     Indication: EPIDURAL ANAESTHESIA
     Route: 008
  2. BUPRENORPHINE HCL [Concomitant]
     Indication: EPIDURAL ANAESTHESIA
     Route: 041
  3. HEPARIN SODIUM [Concomitant]
     Dosage: STARTED ON FOURTH DAY

REACTIONS (4)
  - FLANK PAIN [None]
  - MONOPLEGIA [None]
  - PULMONARY INFARCTION [None]
  - SPINAL CORD INFARCTION [None]
